FAERS Safety Report 5407068-4 (Version None)
Quarter: 2007Q3

REPORT INFORMATION
  Report Type: 
  Country: None (occurrence: None)
  Receive Date: 20070807
  Receipt Date: 20070802
  Transmission Date: 20080115
  Serious: Yes (Life-Threatening, Hospitalization)
  Sender: FDA-Public Use
  Company Number: DE-ASTRAZENECA-2007PK01566

PATIENT
  Age: 18720 Day
  Sex: Female

DRUGS (7)
  1. SEROQUEL [Suspect]
     Indication: SCHIZOPHRENIA, PARANOID TYPE
     Route: 048
  2. SEROQUEL [Suspect]
     Route: 048
  3. VALPROATE SODIUM [Suspect]
  4. AMITRIPTYLINE HCL [Suspect]
  5. LORAZEPAM [Suspect]
  6. SOLIAN [Suspect]
  7. MOVICOL [Suspect]
     Dosage: 2 SACS PER DAY

REACTIONS (2)
  - CONVULSION [None]
  - STATUS EPILEPTICUS [None]
